FAERS Safety Report 5609317-6 (Version None)
Quarter: 2008Q1

REPORT INFORMATION
  Report Type: 
  Country: None (occurrence: None)
  Receive Date: 20080131
  Receipt Date: 20080123
  Transmission Date: 20080703
  Serious: No
  Sender: FDA-Public Use
  Company Number: US-BAXTER-2008BH000167

PATIENT
  Age: 61 Year
  Sex: Male
  Weight: 75 kg

DRUGS (2)
  1. HEPARIN SODIUM [Suspect]
     Indication: CATHETERISATION CARDIAC
     Route: 042
     Dates: start: 20080106
  2. ABCIXIMAB [Concomitant]
     Indication: DRUG USE FOR UNKNOWN INDICATION
     Route: 042
     Dates: start: 20080106

REACTIONS (2)
  - DYSPEPSIA [None]
  - NAUSEA [None]
